FAERS Safety Report 23528734 (Version 1)
Quarter: 2024Q1

REPORT INFORMATION
  Report Type: Report from Study
  Country: US (occurrence: US)
  Receive Date: 20240215
  Receipt Date: 20240215
  Transmission Date: 20240410
  Serious: Yes (Hospitalization)
  Sender: FDA-Public Use
  Company Number: US-ABBVIE-5634594

PATIENT
  Sex: Female

DRUGS (1)
  1. HUMIRA [Suspect]
     Active Substance: ADALIMUMAB
     Indication: Hidradenitis
     Dosage: FORM STRENGTH: 40 MILLIGRAM, CITRATE FREE
     Route: 058
     Dates: start: 20231208, end: 20240112

REACTIONS (7)
  - Pain [Unknown]
  - Abdominal discomfort [Unknown]
  - Uterine leiomyoma [Unknown]
  - Gastrointestinal pain [Unknown]
  - Ovarian cyst [Unknown]
  - Influenza [Unknown]
  - Nasopharyngitis [Unknown]
